FAERS Safety Report 22380918 (Version 1)
Quarter: 2023Q2

REPORT INFORMATION
  Report Type: Other
  Country: JP (occurrence: None)
  Receive Date: 20230530
  Receipt Date: 20230530
  Transmission Date: 20230722
  Serious: Yes (Other)
  Sender: FDA-Public Use
  Company Number: JP-ROCHE-3355689

PATIENT

DRUGS (1)
  1. ATEZOLIZUMAB [Suspect]
     Active Substance: ATEZOLIZUMAB
     Indication: Bladder cancer
     Route: 042

REACTIONS (17)
  - Diarrhoea [Unknown]
  - White blood cell count decreased [Unknown]
  - Lymphocyte count decreased [Unknown]
  - Pollakiuria [Unknown]
  - Dysuria [Unknown]
  - Pyrexia [Unknown]
  - Hepatic function abnormal [Unknown]
  - Fatigue [Unknown]
  - Anaemia [Unknown]
  - Cystitis [Unknown]
  - Malaise [Unknown]
  - Pruritus [Unknown]
  - Faeces soft [Unknown]
  - Constipation [Unknown]
  - Micturition urgency [Unknown]
  - Nausea [Unknown]
  - Decreased appetite [Unknown]
